FAERS Safety Report 18402846 (Version 4)
Quarter: 2021Q1

REPORT INFORMATION
  Report Type: Spontaneous
  Country: PT (occurrence: PT)
  Receive Date: 20201020
  Receipt Date: 20210310
  Transmission Date: 20210419
  Serious: Yes (Hospitalization, Other)
  Sender: FDA-Public Use
  Company Number: PT-AUROBINDO-AUR-APL-2020-050080

PATIENT
  Age: 36 Year
  Sex: Male

DRUGS (1)
  1. TERBINAFINE 250MG [Suspect]
     Active Substance: TERBINAFINE
     Indication: ONYCHOMYCOSIS
     Dosage: 250 MILLIGRAM, ONCE A DAY(DAY IN THE LAST 4 WEEKS)
     Route: 065

REACTIONS (11)
  - Hepatotoxicity [Recovered/Resolved]
  - Jaundice [Recovered/Resolved]
  - Abdominal discomfort [Recovered/Resolved]
  - Herbal interaction [Recovered/Resolved]
  - Cholestasis [Recovered/Resolved]
  - Abdominal pain upper [Recovered/Resolved]
  - Choluria [Recovered/Resolved]
  - Asthenia [Recovered/Resolved]
  - Pruritus [Recovered/Resolved]
  - Drug-induced liver injury [Recovered/Resolved]
  - Deficiency of bile secretion [Recovered/Resolved]
